FAERS Safety Report 7030931-8 (Version None)
Quarter: 2010Q4

REPORT INFORMATION
  Report Type: 
  Country: None (occurrence: None)
  Receive Date: 20101001
  Receipt Date: 20100916
  Transmission Date: 20110411
  Serious: Yes (Hospitalization)
  Sender: FDA-Public Use
  Company Number: AUR-APL-2010-02319

PATIENT
  Age: 81 Year

DRUGS (6)
  1. FLUOXETINE [Suspect]
     Indication: DEPRESSION
     Dosage: 20MG-DAILY-ORAL
     Route: 048
     Dates: end: 20100906
  2. NAPROXEN [Suspect]
     Indication: OSTEOARTHRITIS
     Dosage: 500MG-TWICE DAILY-ORAL
     Route: 048
     Dates: end: 20100901
  3. ALLOPURINOL [Concomitant]
  4. ATENOLOL [Concomitant]
  5. CETIRIZINE HCL [Concomitant]
  6. ACETAMINOPHEN AND CODEINE PHOSPHATE [Concomitant]

REACTIONS (3)
  - DYSPNOEA [None]
  - GASTRIC ULCER [None]
  - MELAENA [None]
